FAERS Safety Report 25210047 (Version 1)
Quarter: 2025Q2

REPORT INFORMATION
  Report Type: Spontaneous
  Country: US (occurrence: US)
  Receive Date: 20250417
  Receipt Date: 20250417
  Transmission Date: 20250716
  Serious: No
  Sender: SANOFI AVENTIS
  Company Number: US-SA-2025SA111535

PATIENT
  Age: 16 Year
  Sex: Female
  Weight: 51.09 kg

DRUGS (2)
  1. DUPIXENT [Suspect]
     Active Substance: DUPILUMAB
     Indication: Dermatitis atopic
     Dosage: 200MG; QOW
     Route: 058
  2. CIBINQO [Suspect]
     Active Substance: ABROCITINIB

REACTIONS (3)
  - Influenza [Unknown]
  - Weight decreased [Unknown]
  - Dermatitis atopic [Unknown]
